FAERS Safety Report 9766556 (Version 1)
Quarter: 2013Q4

REPORT INFORMATION
  Report Type: Spontaneous
  Country: US (occurrence: US)
  Receive Date: 20131217
  Receipt Date: 20131217
  Transmission Date: 20140711
  Serious: No
  Sender: FDA-Public Use
  Company Number: US-GLAXOSMITHKLINE-A1029028A

PATIENT
  Age: 64 Year
  Sex: Female
  Weight: 45.5 kg

DRUGS (5)
  1. VOTRIENT [Suspect]
     Indication: RENAL CANCER
     Dosage: 600MG PER DAY
     Route: 048
     Dates: start: 20130531
  2. LOVASTATIN [Concomitant]
  3. PROMETHAZINE [Concomitant]
  4. LEVOTHYROXIN [Concomitant]
  5. CLONIDINE [Concomitant]

REACTIONS (4)
  - Nausea [Unknown]
  - Diarrhoea [Unknown]
  - Fatigue [Not Recovered/Not Resolved]
  - Vomiting [Not Recovered/Not Resolved]
